FAERS Safety Report 5497887-0 (Version None)
Quarter: 2007Q4

REPORT INFORMATION
  Report Type: 
  Country: None (occurrence: None)
  Receive Date: 20071025
  Receipt Date: 20071010
  Transmission Date: 20080405
  Serious: Yes (Death, Hospitalization, Other)
  Sender: FDA-Public Use
  Company Number: CA-SHR-02/01794-CDS

PATIENT
  Age: 53 Year
  Sex: Male

DRUGS (2)
  1. BACLOFEN [Concomitant]
  2. BETASERON [Suspect]
     Indication: RELAPSING-REMITTING MULTIPLE SCLEROSIS
     Dosage: 8 MIU QOD
     Route: 058
     Dates: start: 20000405

REACTIONS (4)
  - CONVULSION [None]
  - INCONTINENCE [None]
  - MULTIPLE SCLEROSIS [None]
  - PNEUMONIA [None]
